FAERS Safety Report 5470531-4 (Version None)
Quarter: 2007Q3

REPORT INFORMATION
  Report Type: 
  Country: None (occurrence: None)
  Receive Date: 20070927
  Receipt Date: 20070927
  Transmission Date: 20080115
  Serious: Yes (Other)
  Sender: FDA-Public Use
  Company Number: None

PATIENT
  Sex: Female
  Weight: 46.7205 kg

DRUGS (2)
  1. PROAIR HFA [Suspect]
     Indication: ASTHMA
     Dosage: 4 PUFFS 6 HOURS INHAL
     Route: 055
     Dates: start: 20070710, end: 20070926
  2. PROAIR HFA [Suspect]
     Indication: CHRONIC OBSTRUCTIVE PULMONARY DISEASE
     Dosage: 4 PUFFS 6 HOURS INHAL
     Route: 055
     Dates: start: 20070710, end: 20070926

REACTIONS (4)
  - DEVICE FAILURE [None]
  - DRUG INEFFECTIVE [None]
  - PANIC ATTACK [None]
  - PHARMACEUTICAL PRODUCT COMPLAINT [None]
